FAERS Safety Report 17582159 (Version 1)
Quarter: 2020Q1

REPORT INFORMATION
  Report Type: Spontaneous
  Country: US (occurrence: US)
  Receive Date: 20200325
  Receipt Date: 20200325
  Transmission Date: 20200409
  Serious: No
  Sender: FDA-Public Use
  Company Number: US-ASTRAZENECA-2020SE35429

PATIENT
  Sex: Male

DRUGS (1)
  1. PULMICORT FLEXHALER [Suspect]
     Active Substance: BUDESONIDE
     Indication: CHRONIC OBSTRUCTIVE PULMONARY DISEASE
     Dosage: 180 2 PUFFS TWO TIME DAY
     Route: 055

REACTIONS (5)
  - Bronchitis [Unknown]
  - Intentional device misuse [Unknown]
  - Cough [Unknown]
  - Product contamination physical [Unknown]
  - Visual impairment [Unknown]
